FAERS Safety Report 7309521-5 (Version None)
Quarter: 2011Q1

REPORT INFORMATION
  Report Type: 
  Country: None (occurrence: None)
  Receive Date: 20110223
  Receipt Date: 20110214
  Transmission Date: 20110831
  Serious: Yes (Disabling, Other)
  Sender: FDA-Public Use
  Company Number: US-ASTRAZENECA-2011SE01958

PATIENT
  Age: 81 Year
  Sex: Female

DRUGS (1)
  1. NEXIUM [Suspect]
     Route: 048

REACTIONS (6)
  - GLAUCOMA [None]
  - DEAFNESS UNILATERAL [None]
  - MALIGNANT MELANOMA [None]
  - MACULAR DEGENERATION [None]
  - BLINDNESS [None]
  - MALIGNANT NEOPLASM OF EYE [None]
